FAERS Safety Report 13892183 (Version 1)
Quarter: 2017Q3

REPORT INFORMATION
  Report Type: Spontaneous
  Country: ES (occurrence: ES)
  Receive Date: 20170822
  Receipt Date: 20170822
  Transmission Date: 20171127
  Serious: Yes (Other)
  Sender: FDA-Public Use
  Company Number: PHHY2016ES150063

PATIENT
  Age: 67 Year
  Sex: Female

DRUGS (2)
  1. DIETHYLENETRIAMINE PENTA-ACETIC ACID [Suspect]
     Active Substance: PENTETIC ACID
     Indication: CARCINOID TUMOUR
     Route: 065
  2. SANDOSTATIN LAR DEPOT [Suspect]
     Active Substance: OCTREOTIDE ACETATE
     Indication: CARCINOID TUMOUR
     Dosage: UNK
     Route: 065

REACTIONS (3)
  - Deafness neurosensory [Recovering/Resolving]
  - Gait disturbance [Recovered/Resolved]
  - Ototoxicity [Recovering/Resolving]
